FAERS Safety Report 9353308 (Version 1)
Quarter: 2013Q2

REPORT INFORMATION
  Report Type: Spontaneous
  Country: US (occurrence: None)
  Receive Date: 20130617
  Receipt Date: 20130617
  Transmission Date: 20140414
  Serious: No
  Sender: FDA-Public Use
  Company Number: None

PATIENT
  Age: 67 Year
  Sex: Male
  Weight: 124.1 kg

DRUGS (1)
  1. ACETAMINOPHEN/OXYCODONE [Suspect]
     Indication: PAIN
     Dosage: 6 TAB ONCE PO
     Route: 048
     Dates: start: 20130605, end: 20130606

REACTIONS (6)
  - Confusional state [None]
  - Pyrexia [None]
  - Mental status changes [None]
  - Self-medication [None]
  - Alcohol use [None]
  - Drug level increased [None]
